FAERS Safety Report 11225733 (Version 1)
Quarter: 2015Q2

REPORT INFORMATION
  Report Type: Spontaneous
  Country: US (occurrence: US)
  Receive Date: 20150629
  Receipt Date: 20150629
  Transmission Date: 20150821
  Serious: No
  Sender: FDA-Public Use
  Company Number: US-ASTRAZENECA-2015SE60757

PATIENT
  Sex: Male
  Weight: 102.1 kg

DRUGS (3)
  1. FARXIGA [Suspect]
     Active Substance: DAPAGLIFLOZIN PROPANEDIOL
     Route: 048
  2. BYDUREON [Suspect]
     Active Substance: EXENATIDE
     Indication: DIABETES MELLITUS
     Dosage: 2 MG
     Route: 065
     Dates: start: 201505
  3. METFORMON [Concomitant]

REACTIONS (2)
  - Injection site pruritus [Unknown]
  - Injection site mass [Unknown]
